FAERS Safety Report 17803586 (Version 50)
Quarter: 2025Q3

REPORT INFORMATION
  Report Type: Report from Study
  Country: US (occurrence: US)
  Receive Date: 20200519
  Receipt Date: 20250825
  Transmission Date: 20251021
  Serious: Yes (Hospitalization, Other)
  Sender: TAKEDA
  Company Number: US-SHIRE-US202015966

PATIENT
  Age: 59 Year
  Sex: Female
  Weight: 65 kg

DRUGS (52)
  1. HUMAN IMMUNOGLOBULIN G [Suspect]
     Active Substance: HUMAN IMMUNOGLOBULIN G
     Indication: Immunodeficiency common variable
     Dosage: 12 GRAM, 1/WEEK
  2. HUMAN IMMUNOGLOBULIN G [Suspect]
     Active Substance: HUMAN IMMUNOGLOBULIN G
     Indication: Primary immunodeficiency syndrome
     Dosage: 12 GRAM, 1/WEEK
  3. HUMAN IMMUNOGLOBULIN G [Suspect]
     Active Substance: HUMAN IMMUNOGLOBULIN G
  4. HUMAN IMMUNOGLOBULIN G [Suspect]
     Active Substance: HUMAN IMMUNOGLOBULIN G
     Dosage: 12 GRAM, 1/WEEK
  5. ACETAMINOPHEN [Concomitant]
     Active Substance: ACETAMINOPHEN
  6. MELOXICAM [Concomitant]
     Active Substance: MELOXICAM
  7. MORPHINE SULFATE [Concomitant]
     Active Substance: MORPHINE SULFATE
  8. FLUTICASONE PROPIONATE [Concomitant]
     Active Substance: FLUTICASONE PROPIONATE
     Dosage: 50 MICROGRAM, QD
  9. ATORVASTATIN CALCIUM [Concomitant]
     Active Substance: ATORVASTATIN CALCIUM
     Dosage: 20 MILLIGRAM, QD
  10. BACLOFEN [Concomitant]
     Active Substance: BACLOFEN
  11. LIPITOR [Concomitant]
     Active Substance: ATORVASTATIN CALCIUM
  12. TIZANIDINE HYDROCHLORIDE [Concomitant]
     Active Substance: TIZANIDINE HYDROCHLORIDE
     Dosage: 8 MILLIGRAM, TID
  13. PANTOPRAZOLE SODIUM [Concomitant]
     Active Substance: PANTOPRAZOLE SODIUM
     Dosage: 40 MILLIGRAM, BID
  14. ALBUTEROL SULFATE [Concomitant]
     Active Substance: ALBUTEROL SULFATE
     Dosage: UNK, Q4HR
  15. DICLOFENAC SODIUM [Concomitant]
     Active Substance: DICLOFENAC SODIUM
  16. LEXAPRO [Concomitant]
     Active Substance: ESCITALOPRAM OXALATE
  17. FLONASE ALLERGY RELIEF [Concomitant]
     Active Substance: FLUTICASONE PROPIONATE
  18. TRELEGY ELLIPTA [Concomitant]
     Active Substance: FLUTICASONE FUROATE\UMECLIDINIUM BROMIDE\VILANTEROL TRIFENATATE
  19. URSODIOL [Concomitant]
     Active Substance: URSODIOL
  20. LIDOCAINE\PRILOCAINE [Concomitant]
     Active Substance: LIDOCAINE\PRILOCAINE
  21. DOXEPIN HYDROCHLORIDE [Concomitant]
     Active Substance: DOXEPIN HYDROCHLORIDE
  22. DIPHENHYDRAMINE HYDROCHLORIDE [Concomitant]
     Active Substance: DIPHENHYDRAMINE HYDROCHLORIDE
  23. AMITRIPTYLINE HYDROCHLORIDE [Concomitant]
     Active Substance: AMITRIPTYLINE HYDROCHLORIDE
     Dosage: 25 MILLIGRAM, QD
  24. ONDANSETRON HYDROCHLORIDE [Concomitant]
     Active Substance: ONDANSETRON HYDROCHLORIDE
  25. DIPHENHYDRAMINE [Concomitant]
     Active Substance: DIPHENHYDRAMINE
  26. EPINEPHRINE [Concomitant]
     Active Substance: EPINEPHRINE
  27. PROMETHAZINE HYDROCHLORIDE [Concomitant]
     Active Substance: PROMETHAZINE HYDROCHLORIDE
  28. GABAPENTIN [Concomitant]
     Active Substance: GABAPENTIN
  29. ZENPEP [Concomitant]
     Active Substance: PANCRELIPASE AMYLASE\PANCRELIPASE LIPASE\PANCRELIPASE PROTEASE
     Dosage: 4 DOSAGE FORM, QD
  30. OXYCODONE AND ACETAMINOPHEN [Concomitant]
     Active Substance: ACETAMINOPHEN\OXYCODONE HYDROCHLORIDE
  31. FLONASE [Concomitant]
     Active Substance: FLUTICASONE PROPIONATE
  32. LIDOCAINE [Concomitant]
     Active Substance: LIDOCAINE
  33. ALBUTEROL SULFATE [Concomitant]
     Active Substance: ALBUTEROL SULFATE
  34. BENZONATATE [Concomitant]
     Active Substance: BENZONATATE
     Dosage: UNK UNK, Q8HR
  35. CEFUROXIME [Concomitant]
     Active Substance: CEFUROXIME
     Dosage: 250 MILLIGRAM, BID
  36. UMECLIDINIUM [Concomitant]
     Active Substance: UMECLIDINIUM
     Dosage: 62.5 MICROGRAM, QD
  37. Narcan neonatal [Concomitant]
  38. FLUTICASONE FUROATE\SALMETEROL XINAFOATE [Concomitant]
     Active Substance: FLUTICASONE FUROATE\SALMETEROL XINAFOATE
     Dosage: UNK UNK, QD
  39. INCRUSE ELLIPTA [Concomitant]
     Active Substance: UMECLIDINIUM BROMIDE
     Dosage: UNK UNK, QD
  40. ACTIGALL [Concomitant]
     Active Substance: URSODIOL
  41. ZANAFLEX [Concomitant]
     Active Substance: TIZANIDINE HYDROCHLORIDE
     Dosage: 8 MILLIGRAM, TID
  42. PROTONIX [Concomitant]
     Active Substance: PANTOPRAZOLE SODIUM
     Dosage: 40 MILLIGRAM, BID
  43. CEFTIN [Concomitant]
     Active Substance: CEFUROXIME AXETIL
     Dosage: 250 MILLIGRAM, Q12H
  44. TESSALON [Concomitant]
     Active Substance: BENZONATATE
  45. LIPITOR [Concomitant]
     Active Substance: ATORVASTATIN CALCIUM
     Dosage: 20 MILLIGRAM, QD
  46. ELAVIL [Concomitant]
     Active Substance: AMITRIPTYLINE HYDROCHLORIDE
     Dosage: 25 MILLIGRAM, QD
  47. PROAIR HFA [Concomitant]
     Active Substance: ALBUTEROL SULFATE
  48. VENTOLIN HFA [Concomitant]
     Active Substance: ALBUTEROL SULFATE
  49. ALBUTEROL [Concomitant]
     Active Substance: ALBUTEROL
     Indication: Wheezing
  50. ALBUTEROL [Concomitant]
     Active Substance: ALBUTEROL
     Indication: Dyspnoea
  51. ADVAIR HFA [Concomitant]
     Active Substance: FLUTICASONE PROPIONATE\SALMETEROL XINAFOATE
     Dosage: UNK UNK, Q12H
  52. MAGNESIUM [Concomitant]
     Active Substance: MAGNESIUM

REACTIONS (42)
  - Haematological infection [Unknown]
  - Respiratory failure [Unknown]
  - Pneumonia [Unknown]
  - Escherichia infection [Unknown]
  - Bladder cancer recurrent [Unknown]
  - Nasal cavity cancer [Unknown]
  - Bacteraemia [Not Recovered/Not Resolved]
  - Bile duct stone [Unknown]
  - Pancreatitis chronic [Not Recovered/Not Resolved]
  - Cholelithiasis [Unknown]
  - Blood magnesium decreased [Unknown]
  - Limb injury [Unknown]
  - Infection [Unknown]
  - Anal cancer [Unknown]
  - Diabetes mellitus [Unknown]
  - Hypokinesia [Unknown]
  - Pyrexia [Unknown]
  - Vascular injury [Unknown]
  - Foot fracture [Unknown]
  - Fall [Unknown]
  - Dermatitis contact [Unknown]
  - Nasopharyngitis [Unknown]
  - Flatulence [Unknown]
  - Depression [Unknown]
  - Bronchitis [Unknown]
  - Illness [Unknown]
  - Weight decreased [Not Recovered/Not Resolved]
  - Insurance issue [Unknown]
  - Hepatic mass [Unknown]
  - Seasonal allergy [Unknown]
  - Blood glucose increased [Unknown]
  - Product dose omission issue [Unknown]
  - Contusion [Unknown]
  - Blood pressure increased [Unknown]
  - Fatigue [Unknown]
  - Pruritus [Unknown]
  - Abdominal mass [Unknown]
  - Scar [Unknown]
  - Inappropriate schedule of product administration [Unknown]
  - Polyp [Unknown]
  - Anaemia [Unknown]
  - Malaise [Unknown]

NARRATIVE: CASE EVENT DATE: 20231101
